FAERS Safety Report 23400275 (Version 1)
Quarter: 2024Q1

REPORT INFORMATION
  Report Type: Spontaneous
  Country: US (occurrence: US)
  Receive Date: 20240114
  Receipt Date: 20240114
  Transmission Date: 20240410
  Serious: Yes (Hospitalization)
  Sender: FDA-Public Use
  Company Number: US-DRL-USA-SPO/USA/24/0000432

PATIENT
  Sex: Female

DRUGS (1)
  1. DIETARY SUPPLEMENT [Suspect]
     Active Substance: DIETARY SUPPLEMENT
     Indication: Product used for unknown indication

REACTIONS (3)
  - Vaginal discharge [Unknown]
  - Amenorrhoea [Unknown]
  - Dysmenorrhoea [Unknown]
